FAERS Safety Report 18517405 (Version 2)
Quarter: 2020Q4

REPORT INFORMATION
  Report Type: Report from Study
  Country: US (occurrence: US)
  Receive Date: 20201118
  Receipt Date: 20201223
  Transmission Date: 20210114
  Serious: Yes (Other)
  Sender: FDA-Public Use
  Company Number: US-VANDA PHARMACEUTICALS, INC-2020TASUS004422

PATIENT
  Age: 39 Year
  Sex: Female
  Weight: 74.2 kg

DRUGS (1)
  1. HETLIOZ [Suspect]
     Active Substance: TASIMELTEON
     Indication: NON-24-HOUR SLEEP-WAKE DISORDER
     Dosage: 20 MILLIGRAM, QD
     Route: 048
     Dates: start: 20200128, end: 20200330

REACTIONS (1)
  - Invasive breast carcinoma [Unknown]

NARRATIVE: CASE EVENT DATE: 20200916
